FAERS Safety Report 9392790 (Version 1)
Quarter: 2013Q3

REPORT INFORMATION
  Report Type: Spontaneous
  Country: US (occurrence: None)
  Receive Date: 20130708
  Receipt Date: 20130708
  Transmission Date: 20140515
  Serious: Yes (Disabling, Other)
  Sender: FDA-Public Use
  Company Number: None

PATIENT
  Age: 54 Year
  Sex: Male
  Weight: 99.79 kg

DRUGS (1)
  1. ACZONE [Suspect]
     Indication: DERMATITIS
     Dosage: PEA ZISE AMT.
     Route: 061
     Dates: start: 20130605

REACTIONS (9)
  - Pruritus [None]
  - Burning sensation [None]
  - Urticaria [None]
  - Crying [None]
  - Skin discolouration [None]
  - Skin disorder [None]
  - Dyspnoea [None]
  - Skin exfoliation [None]
  - Application site erythema [None]
